FAERS Safety Report 22029607 (Version 1)
Quarter: 2023Q1

REPORT INFORMATION
  Report Type: Spontaneous
  Country: CN (occurrence: CN)
  Receive Date: 20230223
  Receipt Date: 20230223
  Transmission Date: 20230418
  Serious: Yes (Hospitalization)
  Sender: FDA-Public Use
  Company Number: None

PATIENT
  Age: 64 Year
  Sex: Male

DRUGS (2)
  1. MANNITOL [Suspect]
     Active Substance: MANNITOL
     Indication: Reduction of increased intracranial pressure
     Dosage: 100 MILLILITERS (ML) (Q6H) EVERY 6 HOURS (4 DOSES DAILY)
     Route: 041
     Dates: start: 20230203, end: 20230203
  2. MANNITOL [Suspect]
     Active Substance: MANNITOL
     Indication: Diuretic therapy
     Dosage: 100 MILLILITERS (ML) (Q4H) EVERY 4 HOURS (6 DOSES DAILY)
     Route: 041
     Dates: start: 20230204, end: 20230207

REACTIONS (1)
  - Blood creatinine increased [Recovering/Resolving]

NARRATIVE: CASE EVENT DATE: 20230206
